FAERS Safety Report 21349313 (Version 2)
Quarter: 2022Q3

REPORT INFORMATION
  Report Type: Spontaneous
  Country: FR (occurrence: FR)
  Receive Date: 20220919
  Receipt Date: 20220919
  Transmission Date: 20221027
  Serious: Yes (Congenital Anomaly)
  Sender: FDA-Public Use
  Company Number: None

PATIENT
  Sex: Female

DRUGS (7)
  1. LEVOTHYROXINE [Suspect]
     Active Substance: LEVOTHYROXINE
     Indication: Hypothyroidism
     Route: 064
     Dates: start: 20210715, end: 20220415
  2. PROPRANOLOL [Suspect]
     Active Substance: PROPRANOLOL HYDROCHLORIDE
     Indication: Sinus tachycardia
     Route: 064
     Dates: start: 20210715, end: 20220415
  3. PENICILLIN V [Suspect]
     Active Substance: PENICILLIN V
     Indication: Opportunistic infection prophylaxis
     Dosage: 1 MU TWICE PER DAY
     Route: 064
     Dates: start: 20210715, end: 20220415
  4. HYDROCORTISONE [Suspect]
     Active Substance: HYDROCORTISONE
     Indication: Graft versus host disease
     Route: 064
     Dates: start: 20210715, end: 20220415
  5. ESOMEPRAZOLE [Suspect]
     Active Substance: ESOMEPRAZOLE
     Indication: Duodenogastric reflux
     Route: 064
     Dates: start: 20210715, end: 20220415
  6. RUXOLITINIB [Suspect]
     Active Substance: RUXOLITINIB
     Indication: Graft versus host disease
     Route: 064
     Dates: start: 20210715, end: 20210812
  7. VALACYCLOVIR HYDROCHLORIDE [Suspect]
     Active Substance: VALACYCLOVIR HYDROCHLORIDE
     Indication: Opportunistic infection prophylaxis
     Route: 064
     Dates: start: 20210715, end: 20220415

REACTIONS (3)
  - Oligohydramnios [Recovered/Resolved]
  - Foetal growth restriction [Recovering/Resolving]
  - Foetal exposure during pregnancy [Unknown]

NARRATIVE: CASE EVENT DATE: 20220415
